FAERS Safety Report 9020256 (Version 1)
Quarter: 2013Q1

REPORT INFORMATION
  Report Type: Spontaneous
  Country: US (occurrence: US)
  Receive Date: 20130119
  Receipt Date: 20130119
  Transmission Date: 20140127
  Serious: No
  Sender: FDA-Public Use
  Company Number: US-ALLERGAN-1209633US

PATIENT
  Age: 42 Year
  Sex: Male

DRUGS (3)
  1. BOTOX COSMETIC [Suspect]
     Indication: SKIN WRINKLING
     Dosage: 33 UNITS, SINGLE
     Route: 030
  2. BOTOX COSMETIC [Suspect]
     Indication: SKIN WRINKLING
  3. BOTOX COSMETIC [Suspect]
     Indication: SKIN WRINKLING

REACTIONS (2)
  - Extraocular muscle paresis [Not Recovered/Not Resolved]
  - Diplopia [Not Recovered/Not Resolved]
